FAERS Safety Report 7884754-8 (Version None)
Quarter: 2011Q4

REPORT INFORMATION
  Report Type: 
  Country: None (occurrence: None)
  Receive Date: 20111102
  Receipt Date: 20111028
  Transmission Date: 20120403
  Serious: Yes (Hospitalization)
  Sender: FDA-Public Use
  Company Number: US-ABBOTT-11P-163-0869710-00

PATIENT
  Sex: Male
  Weight: 71.278 kg

DRUGS (3)
  1. HUMIRA [Suspect]
     Indication: RHEUMATOID ARTHRITIS
     Dates: start: 20110901, end: 20111001
  2. NORVASC [Concomitant]
     Indication: HYPERTENSION
  3. PREDNISONE [Concomitant]
     Indication: RHEUMATOID ARTHRITIS

REACTIONS (2)
  - OSTEOARTHRITIS [None]
  - DRUG INEFFECTIVE [None]
